FAERS Safety Report 25679598 (Version 1)
Quarter: 2025Q3

REPORT INFORMATION
  Report Type: Spontaneous
  Country: IN (occurrence: IN)
  Receive Date: 20250814
  Receipt Date: 20250814
  Transmission Date: 20251021
  Serious: Yes (Life-Threatening, Other)
  Sender: VALIDUS
  Company Number: IN-VALIDUS PHARMACEUTICALS LLC-VLDS-RB-2025-00154

PATIENT
  Age: 28 Year
  Sex: Male

DRUGS (4)
  1. CARBAMAZEPINE [Suspect]
     Active Substance: CARBAMAZEPINE
     Indication: Epilepsy
     Route: 065
  2. CARBAMAZEPINE [Suspect]
     Active Substance: CARBAMAZEPINE
     Indication: Generalised tonic-clonic seizure
  3. VALPROATE [Concomitant]
     Active Substance: VALPROIC ACID
     Indication: Epilepsy
     Route: 065
  4. VALPROATE [Concomitant]
     Active Substance: VALPROIC ACID
     Indication: Generalised tonic-clonic seizure

REACTIONS (10)
  - Depressed level of consciousness [Recovering/Resolving]
  - Coma [Recovered/Resolved]
  - Overdose [Unknown]
  - Toxicity to various agents [Recovered/Resolved]
  - Altered state of consciousness [Recovering/Resolving]
  - Loss of consciousness [Recovering/Resolving]
  - Suicidal ideation [Recovered/Resolved]
  - New onset refractory status epilepticus [Recovering/Resolving]
  - Status epilepticus [Recovering/Resolving]
  - Drug level increased [Recovering/Resolving]
